FAERS Safety Report 7433981-2 (Version None)
Quarter: 2011Q2

REPORT INFORMATION
  Report Type: 
  Country: None (occurrence: None)
  Receive Date: 20110420
  Receipt Date: 20110420
  Transmission Date: 20111010
  Serious: Yes (Other)
  Sender: FDA-Public Use
  Company Number: None

PATIENT

DRUGS (5)
  1. CYTOXAN [Concomitant]
  2. TAXANE [Concomitant]
  3. HERCEPTIN [Suspect]
     Indication: BREAST CANCER
     Dosage: Q3 WEEKS IV DRIP
     Route: 041
     Dates: start: 20090319, end: 20110113
  4. HERCEPTIN [Suspect]
     Indication: BREAST CANCER
     Dosage: Q2 WEEKS IV DRIP
     Route: 041
     Dates: start: 20090115, end: 20090226
  5. ADRYIAMYCIN [Concomitant]

REACTIONS (4)
  - INTRACARDIAC THROMBUS [None]
  - SICK SINUS SYNDROME [None]
  - ATRIOVENTRICULAR BLOCK COMPLETE [None]
  - ATRIAL FIBRILLATION [None]
